FAERS Safety Report 7757277-4 (Version None)
Quarter: 2011Q3

REPORT INFORMATION
  Report Type: 
  Country: None (occurrence: None)
  Receive Date: 20110916
  Receipt Date: 20110907
  Transmission Date: 20111222
  Serious: Yes (Other)
  Sender: FDA-Public Use
  Company Number: US-BAYER-2011-035426

PATIENT
  Age: 35 Year
  Sex: Female
  Weight: 81.179 kg

DRUGS (16)
  1. CHLORPHENIRAMINE MALEATE [Concomitant]
     Dosage: 4 MG, EVERY 4 TO 6 HOURS, QD
     Route: 048
  2. DOXEPIN HCL [Concomitant]
     Dosage: 10 MG, QD
     Route: 048
  3. FEXOFENADINE HCL [Concomitant]
     Dosage: 180 MG, QD
     Route: 048
  4. FLUOCINONIDE [Concomitant]
     Dosage: UNK UNK, BID
     Route: 061
  5. CLOBETASOL PROPIONATE [Concomitant]
     Dosage: UNK UNK, BID
     Route: 061
  6. LIDOCAINE HCL VISCOUS [Concomitant]
     Dosage: UNK UNK, PRN
     Route: 048
  7. TRIAMCINOLONE ACETONIDE [Concomitant]
     Dosage: UNK UNK, BID
     Route: 061
  8. FEXOFENADINE HCL [Concomitant]
     Dosage: 30 MG, BID
     Route: 048
  9. CETIRIZINE HCL [Concomitant]
     Dosage: 10 MG, QD
     Route: 048
  10. DROSPIRENONE AND ETHINYL ESTRADIOL [Suspect]
     Indication: CONTRACEPTION
     Dosage: UNK
     Route: 048
     Dates: start: 20080906, end: 20090430
  11. CHANTIX [Concomitant]
     Dosage: UNK UNK, BID
     Route: 048
     Dates: start: 20090430
  12. YASMIN [Suspect]
     Indication: CONTRACEPTION
     Dosage: UNK
     Route: 048
     Dates: start: 20080611, end: 20080906
  13. YASMIN [Suspect]
     Indication: PREMENSTRUAL SYNDROME
  14. DROSPIRENONE AND ETHINYL ESTRADIOL [Suspect]
     Indication: PREMENSTRUAL SYNDROME
  15. HYDROXYZINE HCL [Concomitant]
     Dosage: 20 MG, QD
     Route: 048
  16. RANITIDINE HYDROCHLORIDE [Concomitant]
     Dosage: 150 MG, BID
     Route: 048

REACTIONS (1)
  - DEEP VEIN THROMBOSIS [None]
